FAERS Safety Report 7542296-3 (Version None)
Quarter: 2011Q2

REPORT INFORMATION
  Report Type: 
  Country: None (occurrence: None)
  Receive Date: 20110524
  Receipt Date: 20110325
  Transmission Date: 20111010
  Serious: No
  Sender: FDA-Public Use
  Company Number: 026935

PATIENT
  Sex: Female
  Weight: 62.1 kg

DRUGS (8)
  1. METHOTREXATE [Concomitant]
  2. BACTRIM [Concomitant]
  3. FOLIC ACID [Concomitant]
  4. PREVACID [Concomitant]
  5. PREDNISONE [Concomitant]
  6. CIMZIA [Suspect]
     Indication: CROHN'S DISEASE
     Dosage: (SUBCUTANEOUS), (INDUCTION DOSE SUBCUTANEOUS), (400 MG 1X/4 WEEKS, 400 MG IN 2 SHOTS, SUBCUTANEOUS)
     Route: 058
     Dates: start: 20100301, end: 20100101
  7. CIMZIA [Suspect]
     Indication: CROHN'S DISEASE
     Dosage: (SUBCUTANEOUS), (INDUCTION DOSE SUBCUTANEOUS), (400 MG 1X/4 WEEKS, 400 MG IN 2 SHOTS, SUBCUTANEOUS)
     Route: 058
     Dates: start: 20100505
  8. CIMZIA [Suspect]
     Indication: CROHN'S DISEASE
     Dosage: (SUBCUTANEOUS), (INDUCTION DOSE SUBCUTANEOUS), (400 MG 1X/4 WEEKS, 400 MG IN 2 SHOTS, SUBCUTANEOUS)
     Route: 058
     Dates: start: 20101101

REACTIONS (4)
  - POOR PERIPHERAL CIRCULATION [None]
  - HYPOAESTHESIA [None]
  - ABDOMINAL PAIN [None]
  - HEADACHE [None]
